FAERS Safety Report 5350365-1 (Version None)
Quarter: 2007Q3

REPORT INFORMATION
  Report Type: 
  Country: None (occurrence: None)
  Receive Date: 20070605
  Receipt Date: 20070605
  Transmission Date: 20080115
  Serious: Yes (Other)
  Sender: FDA-Public Use
  Company Number: None

PATIENT
  Sex: Female
  Weight: 13.6079 kg

DRUGS (2)
  1. HYOSCYAMINE SULFATE [Suspect]
     Indication: ABDOMINAL PAIN UPPER
     Dosage: 2ML EVERY 4 HOURS
     Route: 048
     Dates: start: 20070601, end: 20070603
  2. LEVSIN [Suspect]

REACTIONS (10)
  - CONFUSIONAL STATE [None]
  - DRUG DISPENSING ERROR [None]
  - HEADACHE [None]
  - INCORRECT DOSE ADMINISTERED [None]
  - MEDICATION ERROR [None]
  - NAUSEA [None]
  - OVERDOSE [None]
  - SOMNOLENCE [None]
  - THIRST [None]
  - VOMITING [None]
